FAERS Safety Report 8859186 (Version 1)
Quarter: 2012Q4

REPORT INFORMATION
  Report Type: Spontaneous
  Country: US (occurrence: None)
  Receive Date: 20121024
  Receipt Date: 20121024
  Transmission Date: 20130627
  Serious: Yes (Other)
  Sender: FDA-Public Use
  Company Number: None

PATIENT
  Age: 45 Year
  Sex: Male
  Weight: 72.58 kg

DRUGS (2)
  1. OXCARBAZEPINE [Suspect]
     Indication: SEIZURE
     Dosage: 300 mg lunch po
     Route: 048
     Dates: start: 20120831, end: 20121023
  2. OXCARBAZEPINE [Suspect]
     Indication: SEIZURE
     Dosage: 1200 mg bed po

REACTIONS (2)
  - Pruritus [None]
  - Middle insomnia [None]
